FAERS Safety Report 4724354-1 (Version None)
Quarter: 2005Q3

REPORT INFORMATION
  Report Type: 
  Country: None (occurrence: None)
  Receive Date: 20050721
  Receipt Date: 20050711
  Transmission Date: 20060218
  Serious: Yes (Death, Life-Threatening)
  Sender: FDA-Public Use
  Company Number: 2005BH000705

PATIENT
  Age: 71 Year

DRUGS (2)
  1. EXTRANEAL [Suspect]
     Dosage: 1500 ML; EVERY DAY; IP
     Route: 033
     Dates: start: 20050708, end: 20050708
  2. DIANEAL [Concomitant]

REACTIONS (2)
  - CARDIO-RESPIRATORY ARREST [None]
  - SEPTIC SHOCK [None]
